FAERS Safety Report 8145297-X (Version None)
Quarter: 2012Q1

REPORT INFORMATION
  Report Type: 
  Country: None (occurrence: None)
  Receive Date: 20120217
  Receipt Date: 20120207
  Transmission Date: 20120608
  Serious: Yes (Other)
  Sender: FDA-Public Use
  Company Number: TR-PERRIGO-12TR001036

PATIENT
  Age: 42 Year
  Sex: Male

DRUGS (1)
  1. MESALAMINE [Suspect]
     Indication: COLITIS ULCERATIVE
     Dosage: UNK
     Route: 065

REACTIONS (7)
  - DYSPNOEA EXERTIONAL [None]
  - LUNG INFILTRATION [None]
  - COMPUTERISED TOMOGRAM THORAX ABNORMAL [None]
  - RESPIRATORY FAILURE [None]
  - BRONCHOALVEOLAR LAVAGE ABNORMAL [None]
  - RALES [None]
  - ACUTE LUNG INJURY [None]
